FAERS Safety Report 25327374 (Version 4)
Quarter: 2025Q2

REPORT INFORMATION
  Report Type: Spontaneous
  Country: US (occurrence: US)
  Receive Date: 20250517
  Receipt Date: 20250621
  Transmission Date: 20250717
  Serious: Yes (Hospitalization, Other)
  Sender: ACCORD
  Company Number: US-Accord-485153

PATIENT
  Age: 55 Year
  Sex: Female
  Weight: 71.0 kg

DRUGS (18)
  1. FLUOROURACIL [Suspect]
     Active Substance: FLUOROURACIL
     Indication: Adenocarcinoma of colon
     Dosage: Q3WEEKS, INTRAVENOUS USE
     Route: 042
     Dates: start: 20250326, end: 20250326
  2. IRINOTECAN [Suspect]
     Active Substance: IRINOTECAN
     Indication: Adenocarcinoma of colon
     Dosage: Q3WEEKS, INTRAVENOUS USE
     Route: 042
     Dates: start: 20250326, end: 20250326
  3. LEUCOVORIN [Suspect]
     Active Substance: LEUCOVORIN\LEUCOVORIN CALCIUM
     Indication: Adenocarcinoma of colon
     Dosage: Q3WEEKS, INTRAVENOUS USE
     Route: 042
     Dates: start: 20250326, end: 20250326
  4. BENTYL [Concomitant]
     Active Substance: DICYCLOMINE HYDROCHLORIDE
     Dates: start: 20241212
  5. LOMOTIL [Concomitant]
     Active Substance: ATROPINE SULFATE\DIPHENOXYLATE HYDROCHLORIDE
     Dates: start: 20230612
  6. DILAUDID [Concomitant]
     Active Substance: HYDROMORPHONE HYDROCHLORIDE
  7. EMLA [Concomitant]
     Active Substance: LIDOCAINE\PRILOCAINE
     Dates: start: 20240813
  8. IMODIUM [Concomitant]
     Active Substance: LOPERAMIDE HYDROCHLORIDE
     Dates: start: 20240813
  9. COZAAR [Concomitant]
     Active Substance: LOSARTAN POTASSIUM
     Dates: start: 20241031
  10. ZOFRAN [Concomitant]
     Active Substance: ONDANSETRON HYDROCHLORIDE
     Dates: start: 20240703
  11. GLYCOLAX [Concomitant]
     Active Substance: POLYETHYLENE GLYCOL 3350
     Dates: start: 20240511
  12. PROCHLORPERAZINE MALEATE [Concomitant]
     Active Substance: PROCHLORPERAZINE MALEATE
     Dates: start: 20230612
  13. LEUCOVORIN [Suspect]
     Active Substance: LEUCOVORIN\LEUCOVORIN CALCIUM
     Indication: Adenocarcinoma of colon
     Dosage: Q3WEEKS, INTRAVENOUS USE
     Route: 042
     Dates: start: 20250409, end: 20250409
  14. FLUOROURACIL [Suspect]
     Active Substance: FLUOROURACIL
     Indication: Adenocarcinoma of colon
     Dosage: Q3WEEKS, INTRAVENOUS USE
     Route: 042
     Dates: start: 20250409, end: 20250409
  15. IRINOTECAN [Suspect]
     Active Substance: IRINOTECAN
     Indication: Adenocarcinoma of colon
     Dosage: Q3WEEKS, INTRAVENOUS USE
     Route: 042
     Dates: start: 20250409, end: 20250409
  16. FLUOROURACIL [Suspect]
     Active Substance: FLUOROURACIL
     Indication: Adenocarcinoma of colon
     Dosage: Q3WEEKS, INTRAVENOUS USE
     Route: 042
     Dates: start: 20250520, end: 20250520
  17. IRINOTECAN [Suspect]
     Active Substance: IRINOTECAN
     Indication: Adenocarcinoma of colon
     Dosage: Q3WEEKS, INTRAVENOUS USE
     Route: 042
     Dates: start: 20250520, end: 20250520
  18. LEUCOVORIN [Suspect]
     Active Substance: LEUCOVORIN\LEUCOVORIN CALCIUM
     Indication: Adenocarcinoma of colon
     Dosage: Q3WEEKS, INTRAVENOUS USE
     Route: 042
     Dates: start: 20250520, end: 20250520

REACTIONS (1)
  - Norovirus infection [Recovered/Resolved]

NARRATIVE: CASE EVENT DATE: 20250410
